FAERS Safety Report 14676079 (Version 1)
Quarter: 2018Q1

REPORT INFORMATION
  Report Type: Spontaneous
  Country: NL (occurrence: NL)
  Receive Date: 20180323
  Receipt Date: 20180323
  Transmission Date: 20180509
  Serious: Yes (Other)
  Sender: FDA-Public Use
  Company Number: NL-TEVA-2018-NL-872352

PATIENT
  Sex: Male

DRUGS (2)
  1. PAROXETINE HCL ANHYDRAAT TEVA 10 MG, TABLETTEN [Suspect]
     Active Substance: PAROXETINE HYDROCHLORIDE
     Dosage: 10 MILLIGRAM DAILY; RESTARTED
     Route: 048
  2. PAROXETINE HCL ANHYDRAAT TEVA 10 MG, TABLETTEN [Suspect]
     Active Substance: PAROXETINE HYDROCHLORIDE
     Indication: MALAISE
     Dosage: 10 MILLIGRAM DAILY; STARTED 15 YEARS AGO
     Route: 048
     Dates: end: 2017

REACTIONS (3)
  - Eye degenerative disorder [Not Recovered/Not Resolved]
  - Eye disorder [Not Recovered/Not Resolved]
  - Vision blurred [Not Recovered/Not Resolved]
